FAERS Safety Report 13888677 (Version 1)
Quarter: 2017Q3

REPORT INFORMATION
  Report Type: Report from Study
  Country: IT (occurrence: IT)
  Receive Date: 20170821
  Receipt Date: 20170821
  Transmission Date: 20171127
  Serious: Yes (Other)
  Sender: FDA-Public Use
  Company Number: IT-TAKEDA-2017MPI007091

PATIENT

DRUGS (4)
  1. VELCADE [Suspect]
     Active Substance: BORTEZOMIB
     Indication: PLASMA CELL MYELOMA
     Dosage: 1.6 MG/M2, UNK
     Route: 042
  2. THALIDOMIDE [Suspect]
     Active Substance: THALIDOMIDE
     Indication: PLASMA CELL MYELOMA
     Dosage: UNK UNK, QD
     Route: 048
  3. DEXAMETHASONE. [Suspect]
     Active Substance: DEXAMETHASONE
     Indication: PLASMA CELL MYELOMA
     Dosage: 20 MG, QD
     Route: 065
  4. MELPHALAN. [Concomitant]
     Active Substance: MELPHALAN
     Dosage: UNK
     Route: 065

REACTIONS (23)
  - Cardiac disorder [Unknown]
  - Gastrointestinal disorder [Unknown]
  - Nervous system disorder [Unknown]
  - Pneumonia [Unknown]
  - Pyrexia [Unknown]
  - Hyperglycaemia [Unknown]
  - Rash [Unknown]
  - Neutropenia [Unknown]
  - Oedema peripheral [Unknown]
  - Infection [Unknown]
  - Toxicity to various agents [Unknown]
  - Anaemia [Unknown]
  - Thrombocytopenia [Unknown]
  - Dizziness [Unknown]
  - Hypotension [Unknown]
  - Bronchitis [Unknown]
  - Neuralgia [Unknown]
  - Paraesthesia [Unknown]
  - Fatigue [Unknown]
  - Herpes zoster [Unknown]
  - Mood altered [Unknown]
  - Influenza like illness [Unknown]
  - Constipation [Unknown]
